FAERS Safety Report 8085423-4 (Version None)
Quarter: 2012Q1

REPORT INFORMATION
  Report Type: 
  Country: None (occurrence: None)
  Receive Date: 20120128
  Receipt Date: 20110406
  Transmission Date: 20120608
  Serious: No
  Sender: FDA-Public Use
  Company Number: US-ABBOTT-11P-163-0699188-00

PATIENT
  Sex: Female
  Weight: 85.806 kg

DRUGS (5)
  1. LISINOPRIL [Concomitant]
     Indication: HYPERTENSION
  2. HUMIRA [Suspect]
     Indication: COLITIS ULCERATIVE
     Route: 058
     Dates: start: 20101001
  3. EVISTA [Concomitant]
     Indication: PROPHYLAXIS
  4. CELEXA [Concomitant]
     Indication: DEPRESSION
  5. ADVAIR DISKUS 100/50 [Concomitant]
     Indication: ASTHMA

REACTIONS (4)
  - FATIGUE [None]
  - RASH [None]
  - DYSPNOEA [None]
  - DRUG INEFFECTIVE [None]
